FAERS Safety Report 5310064-9 (Version None)
Quarter: 2007Q2

REPORT INFORMATION
  Report Type: 
  Country: None (occurrence: None)
  Receive Date: 20070427
  Receipt Date: 20070419
  Transmission Date: 20071010
  Serious: Yes (Hospitalization)
  Sender: FDA-Public Use
  Company Number: FR-GLAXOSMITHKLINE-B0467419A

PATIENT
  Age: 6 Month
  Sex: Male

DRUGS (4)
  1. VENTOLIN [Suspect]
     Dosage: 100MCG UNKNOWN
     Route: 055
     Dates: start: 20070301, end: 20070301
  2. PARACETAMOL [Suspect]
     Route: 048
     Dates: start: 20070225, end: 20070324
  3. NIFLURIL [Suspect]
     Dosage: 200MG TWICE PER DAY
     Route: 054
     Dates: start: 20070301, end: 20070301
  4. MAXILASE [Concomitant]
     Dosage: 1UNIT SINGLE DOSE
     Dates: start: 20070301, end: 20070301

REACTIONS (3)
  - AGRANULOCYTOSIS [None]
  - HAEMOGLOBIN DECREASED [None]
  - NEUTROPENIA [None]
